FAERS Safety Report 6372386-2 (Version None)
Quarter: 2009Q3

REPORT INFORMATION
  Report Type: 
  Country: None (occurrence: None)
  Receive Date: 20090924
  Receipt Date: 20081015
  Transmission Date: 20100115
  Serious: No
  Sender: FDA-Public Use
  Company Number: US-ASTRAZENECA-2008UW22731

PATIENT
  Age: 66 Year
  Sex: Female

DRUGS (11)
  1. SEROQUEL [Suspect]
     Indication: SLEEP DISORDER
     Dosage: 25MG (3/4 TABLET) AT NIGHT FOR SLEEP
     Route: 048
  2. CRESTOR [Suspect]
     Indication: BLOOD CHOLESTEROL INCREASED
     Route: 048
  3. CARBITROL [Concomitant]
  4. WELLBUTRIN SR [Concomitant]
     Dosage: 300MG
  5. ESTROGEL [Concomitant]
     Dosage: 300MG
  6. PROMETRIUM [Concomitant]
     Dosage: 300MG
  7. SYNTHROID [Concomitant]
     Dosage: 300MG
  8. PROTONIX [Concomitant]
     Dosage: 300MG
  9. FOSAMAX [Concomitant]
     Dosage: 300MG
  10. CELEBREX [Concomitant]
  11. LIMBREL [Concomitant]

REACTIONS (3)
  - DRY EYE [None]
  - FATIGUE [None]
  - SLEEP DISORDER [None]
